FAERS Safety Report 12612409 (Version 2)
Quarter: 2020Q2

REPORT INFORMATION
  Report Type: Spontaneous
  Country: PT (occurrence: PT)
  Receive Date: 20160801
  Receipt Date: 20200630
  Transmission Date: 20200713
  Serious: Yes (Other)
  Sender: FDA-Public Use
  Company Number: PT-JNJFOC-20160723584

PATIENT
  Age: 63 Year
  Sex: Female

DRUGS (4)
  1. BUDESONIDE W/FORMOTEROL [Interacting]
     Active Substance: BUDESONIDE\FORMOTEROL
     Indication: BRONCHOPULMONARY ASPERGILLOSIS ALLERGIC
     Dosage: 160/4, 5MUG/INHALATION
     Route: 065
  2. SPORANOX [Suspect]
     Active Substance: ITRACONAZOLE
     Indication: BRONCHOPULMONARY ASPERGILLOSIS ALLERGIC
     Dosage: 7 MONTHS
     Route: 065
     Dates: end: 201107
  3. TIOTROPIUM BROMIDE [Suspect]
     Active Substance: TIOTROPIUM BROMIDE
     Indication: BRONCHOPULMONARY ASPERGILLOSIS ALLERGIC
     Dosage: 18 MUG/INHALATION
     Route: 065
  4. MOMETASONE FUROATE. [Suspect]
     Active Substance: MOMETASONE FUROATE
     Indication: BRONCHOPULMONARY ASPERGILLOSIS ALLERGIC
     Dosage: 50 MUG/PULVERIZATION
     Route: 065

REACTIONS (3)
  - Weight decreased [Unknown]
  - Drug interaction [Unknown]
  - Cushing^s syndrome [Unknown]
